FAERS Safety Report 6385236-5 (Version None)
Quarter: 2009Q4

REPORT INFORMATION
  Report Type: 
  Country: None (occurrence: None)
  Receive Date: 20091002
  Receipt Date: 20090623
  Transmission Date: 20100525
  Serious: No
  Sender: FDA-Public Use
  Company Number: US-ASTRAZENECA-2008UW08539

PATIENT
  Age: 53 Year
  Sex: Female
  Weight: 67.1 kg

DRUGS (1)
  1. ARIMIDEX [Suspect]
     Indication: BREAST CANCER
     Route: 048
     Dates: start: 20080401

REACTIONS (2)
  - INSOMNIA [None]
  - MENSTRUATION IRREGULAR [None]
